FAERS Safety Report 4290353-X (Version None)
Quarter: 2004Q1

REPORT INFORMATION
  Report Type: 
  Country: None (occurrence: None)
  Receive Date: 20040206
  Receipt Date: 20040206
  Transmission Date: 20041129
  Serious: Yes (Hospitalization)
  Sender: FDA-Public Use
  Company Number: None

PATIENT
  Sex: Female
  Weight: 56.246 kg

DRUGS (2)
  1. NAVELBINE [Suspect]
     Indication: BREAST CANCER STAGE IV
     Dosage: 27.5 MG DAY 8 + 15 IV
     Route: 042
     Dates: start: 20040129, end: 20040129
  2. NEUPOGEN [Concomitant]

REACTIONS (3)
  - ELECTROLYTE IMBALANCE [None]
  - HYPOKALAEMIA [None]
  - HYPOPHOSPHATAEMIA [None]
